FAERS Safety Report 6399077-6 (Version None)
Quarter: 2009Q4

REPORT INFORMATION
  Report Type: 
  Country: None (occurrence: None)
  Receive Date: 20091008
  Receipt Date: 20090930
  Transmission Date: 20100525
  Serious: Yes (Other)
  Sender: FDA-Public Use
  Company Number: TRP_06467_2009

PATIENT
  Sex: Female

DRUGS (2)
  1. RIBASPHERE [Suspect]
     Indication: HEPATITIS C
     Dosage: (1200 MG)
     Dates: start: 20090529
  2. PEGASYS [Suspect]
     Indication: HEPATITIS C
     Dosage: (180 ?G)
     Dates: start: 20090529

REACTIONS (1)
  - HAEMOPTYSIS [None]
